FAERS Safety Report 5074212-0 (Version None)
Quarter: 2006Q3

REPORT INFORMATION
  Report Type: 
  Country: None (occurrence: None)
  Receive Date: 20060803
  Receipt Date: 20060726
  Transmission Date: 20061208
  Serious: Yes (Hospitalization)
  Sender: FDA-Public Use
  Company Number: MEDI-0004816

PATIENT
  Sex: Female

DRUGS (2)
  1. ETHYOL [Suspect]
     Indication: CHEMOTHERAPY
  2. MELPHALAN (MELPHALAN) [Concomitant]

REACTIONS (3)
  - CHILLS [None]
  - DERMATITIS ALLERGIC [None]
  - PYREXIA [None]
